FAERS Safety Report 9562085 (Version 2)
Quarter: 2013Q4

REPORT INFORMATION
  Report Type: Spontaneous
  Country: US (occurrence: US)
  Receive Date: 20130927
  Receipt Date: 20131010
  Transmission Date: 20140711
  Serious: Yes (Other)
  Sender: FDA-Public Use
  Company Number: US-AMGEN-USASP2013066561

PATIENT
  Age: 87 Year
  Sex: Female

DRUGS (1)
  1. PROLIA [Suspect]
     Indication: OSTEOPOROSIS POSTMENOPAUSAL
     Dosage: UNK
     Route: 065
     Dates: start: 2012

REACTIONS (6)
  - Neuralgia [Unknown]
  - Intervertebral disc disorder [Unknown]
  - Scoliosis [Unknown]
  - Mobility decreased [Unknown]
  - Walking aid user [Unknown]
  - Arthropathy [Unknown]
